FAERS Safety Report 4867342-7 (Version None)
Quarter: 2005Q4

REPORT INFORMATION
  Report Type: 
  Country: None (occurrence: None)
  Receive Date: 20051222
  Receipt Date: 20051214
  Transmission Date: 20060501
  Serious: Yes (Other)
  Sender: FDA-Public Use
  Company Number: 2005168535

PATIENT
  Age: 75 Year
  Sex: Female

DRUGS (3)
  1. ZYVOX [Suspect]
     Indication: STAPHYLOCOCCAL INFECTION
     Dosage: 1200 MG (600 MG, 2 IN 1 D), ORAL
     Route: 048
     Dates: start: 20051201, end: 20051213
  2. CIPROFLOXACIN [Suspect]
     Indication: URINARY TRACT INFECTION
     Dates: end: 20051211
  3. CORTICOSTEROIDS (CORTICOSTEROIDS) [Concomitant]

REACTIONS (5)
  - ANGIONEUROTIC OEDEMA [None]
  - DEVICE RELATED INFECTION [None]
  - DYSPNOEA [None]
  - HYPERSENSITIVITY [None]
  - STAPHYLOCOCCAL BACTERAEMIA [None]
